FAERS Safety Report 7908849-5 (Version None)
Quarter: 2011Q4

REPORT INFORMATION
  Report Type: 
  Country: None (occurrence: None)
  Receive Date: 20111111
  Receipt Date: 20111102
  Transmission Date: 20120403
  Serious: Yes (Hospitalization)
  Sender: FDA-Public Use
  Company Number: US-BAYER-2011-063861

PATIENT
  Age: 26 Year
  Sex: Female
  Weight: 92.971 kg

DRUGS (2)
  1. ZANTAC [Concomitant]
  2. YAZ [Suspect]
     Indication: ORAL CONTRACEPTION
     Dosage: UNK
     Dates: start: 20081001, end: 20090701

REACTIONS (7)
  - CHOLELITHIASIS [None]
  - ABDOMINAL PAIN [None]
  - PAIN [None]
  - INJURY [None]
  - BACK PAIN [None]
  - VOMITING [None]
  - CHOLECYSTITIS ACUTE [None]
